FAERS Safety Report 5251985-5 (Version None)
Quarter: 2007Q1

REPORT INFORMATION
  Report Type: 
  Country: None (occurrence: None)
  Receive Date: 20070226
  Receipt Date: 20070219
  Transmission Date: 20070707
  Serious: Yes (Hospitalization)
  Sender: FDA-Public Use
  Company Number: 2007SP003090

PATIENT
  Age: 15 Month
  Sex: Male
  Weight: 9.8 kg

DRUGS (2)
  1. BETAMETHASONE [Suspect]
     Indication: PHARYNGOLARYNGEAL PAIN
     Dosage: 1.25 MG;QD;PO
     Route: 048
     Dates: start: 20070115, end: 20070121
  2. CIBLOR (AMOXICILLIN W/CLAVULANATE POTASSIUM) [Suspect]
     Indication: PHARYNGOLARYNGEAL PAIN
     Dosage: 1 DF;QD;PO
     Route: 048
     Dates: start: 20070115, end: 20070121

REACTIONS (5)
  - DUODENAL ULCER [None]
  - FAECES DISCOLOURED [None]
  - RASH [None]
  - STOMATITIS [None]
  - VOMITING [None]
